FAERS Safety Report 14477410 (Version 1)
Quarter: 2018Q1

REPORT INFORMATION
  Report Type: Report from Study
  Country: US (occurrence: US)
  Receive Date: 20180201
  Receipt Date: 20180201
  Transmission Date: 20180509
  Serious: No
  Sender: FDA-Public Use
  Company Number: US-EXELIXIS-CABO-17011013

PATIENT
  Sex: Female

DRUGS (31)
  1. CARVEDILOL. [Concomitant]
     Active Substance: CARVEDILOL
  2. RANITIDINE. [Concomitant]
     Active Substance: RANITIDINE
  3. GABAPENTIN. [Concomitant]
     Active Substance: GABAPENTIN
  4. OXYCODONE [Concomitant]
     Active Substance: OXYCODONE
  5. HYDROCORTISONE. [Concomitant]
     Active Substance: HYDROCORTISONE
  6. ZOFRAN [Concomitant]
     Active Substance: ONDANSETRON HYDROCHLORIDE
  7. METHADONE [Concomitant]
     Active Substance: METHADONE HYDROCHLORIDE
  8. FUROSEMIDE. [Concomitant]
     Active Substance: FUROSEMIDE
  9. ALBUTEROL. [Concomitant]
     Active Substance: ALBUTEROL
  10. SIMVASTATIN. [Concomitant]
     Active Substance: SIMVASTATIN
  11. ADVAIR HFA [Concomitant]
     Active Substance: FLUTICASONE PROPIONATE\SALMETEROL XINAFOATE
  12. FENTANYL. [Concomitant]
     Active Substance: FENTANYL
  13. VICTOZA [Concomitant]
     Active Substance: LIRAGLUTIDE
  14. MULTIVITAMIN [Concomitant]
     Active Substance: VITAMINS
  15. FERROUS SULFATE. [Concomitant]
     Active Substance: FERROUS SULFATE
  16. CALCIUM BICARBONATE [Concomitant]
     Active Substance: CALCIUM BICARBONATE
  17. CLOPIDOGREL [Concomitant]
     Active Substance: CLOPIDOGREL BISULFATE
  18. MUPIROCIN. [Concomitant]
     Active Substance: MUPIROCIN
  19. LIDOCAINE. [Concomitant]
     Active Substance: LIDOCAINE
  20. ASPIRIN. [Concomitant]
     Active Substance: ASPIRIN
  21. TIZANIDINE. [Concomitant]
     Active Substance: TIZANIDINE
  22. CABOMETYX [Suspect]
     Active Substance: CABOZANTINIB S-MALATE
     Indication: METASTASES TO BONE
  23. POTASSIUM CHLORIDE. [Concomitant]
     Active Substance: POTASSIUM CHLORIDE
  24. VITAMIN D [Concomitant]
     Active Substance: CHOLECALCIFEROL
  25. LEVEMIR [Concomitant]
     Active Substance: INSULIN DETEMIR
  26. RITALIN [Concomitant]
     Active Substance: METHYLPHENIDATE HYDROCHLORIDE
  27. CLONIDINE. [Concomitant]
     Active Substance: CLONIDINE
  28. SERTRALINE [Concomitant]
     Active Substance: SERTRALINE HYDROCHLORIDE
  29. CABOMETYX [Suspect]
     Active Substance: CABOZANTINIB S-MALATE
     Indication: RENAL CANCER
     Dosage: 60 MG, QD
     Route: 048
     Dates: start: 20170825, end: 20171208
  30. BISACODYL. [Concomitant]
     Active Substance: BISACODYL
  31. HYDRALAZINE [Concomitant]
     Active Substance: HYDRALAZINE HYDROCHLORIDE

REACTIONS (5)
  - Impaired healing [Not Recovered/Not Resolved]
  - Cancer pain [Unknown]
  - Staphylococcal infection [Unknown]
  - Blood blister [Unknown]
  - Malignant neoplasm progression [Unknown]
